FAERS Safety Report 15265826 (Version 7)
Quarter: 2020Q3

REPORT INFORMATION
  Report Type: Report from Study
  Country: GB (occurrence: GB)
  Receive Date: 20180810
  Receipt Date: 20190327
  Transmission Date: 20201104
  Serious: Yes (Hospitalization, Other)
  Sender: FDA-Public Use
  Company Number: GB-JNJFOC-20180803429

PATIENT
  Age: 56 Year
  Sex: Male
  Weight: 64 kg

DRUGS (23)
  1. ORAMORPH [Concomitant]
     Active Substance: MORPHINE SULFATE
     Indication: MUSCULOSKELETAL CHEST PAIN
     Route: 048
  2. PARACETAMOL [Concomitant]
     Active Substance: ACETAMINOPHEN
     Indication: INFUSION RELATED REACTION
     Route: 048
     Dates: start: 20180704
  3. DARATUMUMAB [Suspect]
     Active Substance: DARATUMUMAB
     Indication: PLASMA CELL MYELOMA
     Dosage: START 04?JUL?2018
     Route: 042
     Dates: end: 20180719
  4. PARACETAMOL [Concomitant]
     Active Substance: ACETAMINOPHEN
     Indication: PAIN
     Dosage: DOSE = OTHER
     Route: 048
     Dates: start: 20180614
  5. DEXAMETHASONE. [Concomitant]
     Active Substance: DEXAMETHASONE
     Route: 042
     Dates: start: 20180704
  6. ACICLOVIR [Concomitant]
     Active Substance: ACYCLOVIR
     Indication: PROPHYLAXIS
     Route: 048
     Dates: start: 20180605
  7. ORAMORPH [Concomitant]
     Active Substance: MORPHINE SULFATE
     Indication: MUSCULOSKELETAL CHEST PAIN
     Route: 048
     Dates: start: 20180718
  8. ALLOPURINOL. [Concomitant]
     Active Substance: ALLOPURINOL
     Indication: PROPHYLAXIS
     Route: 048
     Dates: start: 20180705
  9. PARACETAMOL [Concomitant]
     Active Substance: ACETAMINOPHEN
     Indication: PAIN
     Route: 048
     Dates: start: 20180622, end: 20180622
  10. PARACETAMOL [Concomitant]
     Active Substance: ACETAMINOPHEN
     Indication: PAIN
     Route: 048
     Dates: start: 20180704
  11. DARATUMUMAB [Suspect]
     Active Substance: DARATUMUMAB
     Route: 042
  12. AUGMENTIN [Concomitant]
     Active Substance: AMOXICILLIN\CLAVULANATE POTASSIUM
     Indication: INFLUENZA LIKE ILLNESS
     Route: 048
     Dates: start: 20180711, end: 201807
  13. LANSOPRAZOLE. [Concomitant]
     Active Substance: LANSOPRAZOLE
     Indication: PROPHYLAXIS
     Route: 048
     Dates: start: 20180705
  14. COTRIMOXAZOLE [Concomitant]
     Active Substance: SULFAMETHOXAZOLE\TRIMETHOPRIM
     Indication: PROPHYLAXIS
     Route: 048
     Dates: start: 20180705
  15. ONDANSETRON [Concomitant]
     Active Substance: ONDANSETRON
     Indication: PROPHYLAXIS
     Route: 065
     Dates: start: 20180719, end: 20180719
  16. PARACETAMOL [Concomitant]
     Active Substance: ACETAMINOPHEN
     Indication: INFUSION RELATED REACTION
     Dosage: DOSE = OTHER
     Route: 048
     Dates: start: 20180614
  17. PARACETAMOL [Concomitant]
     Active Substance: ACETAMINOPHEN
     Indication: INFUSION RELATED REACTION
     Route: 048
     Dates: start: 20180622, end: 20180622
  18. AUGMENTIN [Concomitant]
     Active Substance: AMOXICILLIN\CLAVULANATE POTASSIUM
     Indication: PYREXIA
     Route: 048
     Dates: start: 20180627, end: 20180703
  19. AUGMENTIN [Concomitant]
     Active Substance: AMOXICILLIN\CLAVULANATE POTASSIUM
     Indication: PYREXIA
     Route: 048
     Dates: start: 20180711, end: 201807
  20. ORAMORPH [Concomitant]
     Active Substance: MORPHINE SULFATE
     Indication: MUSCULOSKELETAL CHEST PAIN
     Dosage: ONCE
     Route: 048
     Dates: start: 20180718, end: 20180718
  21. CHLORPHENAMINE [Concomitant]
     Active Substance: CHLORPHENIRAMINE MALEATE
     Route: 042
     Dates: start: 20180704
  22. AUGMENTIN [Concomitant]
     Active Substance: AMOXICILLIN\CLAVULANATE POTASSIUM
     Indication: INFLUENZA LIKE ILLNESS
     Route: 048
     Dates: start: 20180627, end: 20180703
  23. NOZINAN [Concomitant]
     Active Substance: LEVOMEPROMAZINE
     Indication: PROPHYLAXIS OF NAUSEA AND VOMITING
     Route: 058
     Dates: start: 20180719, end: 20180719

REACTIONS (3)
  - Blood bilirubin increased [Recovered/Resolved]
  - Vomiting [Recovered/Resolved]
  - Transfusion reaction [Recovered/Resolved]

NARRATIVE: CASE EVENT DATE: 20180622
